FAERS Safety Report 18823639 (Version 1)
Quarter: 2021Q1

REPORT INFORMATION
  Report Type: Spontaneous
  Country: US (occurrence: US)
  Receive Date: 20210202
  Receipt Date: 20210202
  Transmission Date: 20210419
  Serious: No
  Sender: FDA-Public Use
  Company Number: US-NEOS THERAPEUTICS, LP-2020NEO00052

PATIENT
  Age: 29 Year
  Sex: Male

DRUGS (3)
  1. ADZENYS XR?ODT [Suspect]
     Active Substance: AMPHETAMINE
     Indication: ATTENTION DEFICIT HYPERACTIVITY DISORDER
     Dosage: 12.5 MG, 1X/DAY
     Dates: start: 201911, end: 202010
  2. ADZENYS XR?ODT [Suspect]
     Active Substance: AMPHETAMINE
     Indication: ATTENTION DEFICIT HYPERACTIVITY DISORDER
     Dosage: 15.7 MG, 1X/DAY
     Dates: start: 202010, end: 20201118
  3. ADZENYS XR?ODT [Suspect]
     Active Substance: AMPHETAMINE
     Dosage: 12.5 MG, 1X/DAY
     Dates: start: 20201119

REACTIONS (3)
  - Product dispensing error [Unknown]
  - Therapeutic product effect incomplete [Unknown]
  - Incorrect dose administered [Unknown]

NARRATIVE: CASE EVENT DATE: 202011
